FAERS Safety Report 10408518 (Version 1)
Quarter: 2014Q3

REPORT INFORMATION
  Report Type: Spontaneous
  Country: BR (occurrence: None)
  Receive Date: 20140821
  Receipt Date: 20140821
  Transmission Date: 20150326
  Serious: Yes (Other)
  Sender: FDA-Public Use
  Company Number: AUR-APL-2014-08925

PATIENT
  Age: 57 Year
  Sex: Male

DRUGS (7)
  1. ENALAPRIL (ENALAPRIL) [Concomitant]
     Active Substance: ENALAPRIL
  2. LORMETAZEPAM (LORMETAZEPAM) [Concomitant]
     Active Substance: LORMETAZEPAM
  3. OMEPRAZOLE (OMEPRAZOLE) [Concomitant]
     Active Substance: OMEPRAZOLE
  4. CHLORPROMAZINE (CHLORPROMAZINE) [Suspect]
     Active Substance: CHLORPROMAZINE
     Indication: PRODUCT USED FOR UNKNOWN INDICATION
  5. TAMSULOSIN (TAMSULOSIN) [Concomitant]
     Active Substance: TAMSULOSIN
  6. MIRTAZAPINE 15MG (MIRTAZAPINE) UNKNOWN, 15MG [Suspect]
     Active Substance: MIRTAZAPINE
     Indication: PRODUCT USED FOR UNKNOWN INDICATION
  7. ALPRAZOLAM (ALPRAZOLAM) [Concomitant]
     Active Substance: ALPRAZOLAM

REACTIONS (5)
  - Dry mouth [None]
  - Serotonin syndrome [None]
  - Bruxism [None]
  - Tooth disorder [None]
  - Drug interaction [None]
